FAERS Safety Report 12750058 (Version 1)
Quarter: 2016Q3

REPORT INFORMATION
  Report Type: Spontaneous
  Country: US (occurrence: US)
  Receive Date: 20160915
  Receipt Date: 20160915
  Transmission Date: 20161109
  Serious: Yes (Other)
  Sender: FDA-Public Use
  Company Number: US-ASTELLAS-2015US048458

PATIENT
  Age: 88 Year
  Sex: Male

DRUGS (1)
  1. XTANDI [Suspect]
     Active Substance: ENZALUTAMIDE
     Indication: PROSTATE CANCER
     Dosage: 160 MG (40 MG X 4), ONCE DAILY BY MOUTH
     Route: 048
     Dates: start: 20151008

REACTIONS (12)
  - Asthenia [Unknown]
  - Nausea [Unknown]
  - Pollakiuria [Unknown]
  - Glaucoma [Unknown]
  - Fall [Unknown]
  - Hand fracture [Unknown]
  - Eye disorder [Unknown]
  - Urinary incontinence [Unknown]
  - Fatigue [Unknown]
  - Hypersomnia [Unknown]
  - Wrist fracture [Unknown]
  - Lumbar vertebral fracture [Unknown]

NARRATIVE: CASE EVENT DATE: 20151008
